FAERS Safety Report 25057594 (Version 1)
Quarter: 2025Q1

REPORT INFORMATION
  Report Type: Spontaneous
  Country: US (occurrence: US)
  Receive Date: 20250310
  Receipt Date: 20250310
  Transmission Date: 20250409
  Serious: Yes (Hospitalization)
  Sender: JOHNSON AND JOHNSON
  Company Number: US-JNJFOC-20250318115

PATIENT
  Age: 38 Year
  Sex: Female

DRUGS (5)
  1. OPSUMIT [Suspect]
     Active Substance: MACITENTAN
     Indication: Product used for unknown indication
     Route: 048
  2. XARELTO [Concomitant]
     Active Substance: RIVAROXABAN
  3. TYLENOL [Concomitant]
     Active Substance: ACETAMINOPHEN
  4. TADALAFIL [Concomitant]
     Active Substance: TADALAFIL
  5. TYVASO [Concomitant]
     Active Substance: TREPROSTINIL

REACTIONS (1)
  - Hospitalisation [Unknown]
